FAERS Safety Report 20228391 (Version 1)
Quarter: 2021Q4

REPORT INFORMATION
  Report Type: Spontaneous
  Country: DE (occurrence: DE)
  Receive Date: 20211224
  Receipt Date: 20211224
  Transmission Date: 20220303
  Serious: Yes (Hospitalization)
  Sender: FDA-Public Use
  Company Number: DE-ADRED-06595-01

PATIENT
  Age: 30 Year
  Sex: Female
  Weight: 50 kg

DRUGS (6)
  1. METAMIZOLE [Suspect]
     Active Substance: METAMIZOLE
     Route: 048
  2. ACETAMINOPHEN [Suspect]
     Active Substance: ACETAMINOPHEN
     Route: 048
  3. ASPIRIN [Suspect]
     Active Substance: ASPIRIN
     Dosage: ACETYLSALICYLSAURE
     Route: 048
  4. BISOPROLOL [Suspect]
     Active Substance: BISOPROLOL
     Dosage: 5 MILLIGRAM DAILY;  1-0-0-0
     Route: 048
  5. IBUPROFEN [Suspect]
     Active Substance: IBUPROFEN
     Route: 048
  6. KETOPROFEN [Suspect]
     Active Substance: KETOPROFEN
     Route: 048

REACTIONS (6)
  - Memory impairment [Unknown]
  - Product used for unknown indication [Unknown]
  - Eye pain [Unknown]
  - Pyrexia [Unknown]
  - Ear pain [Unknown]
  - Headache [Unknown]
